FAERS Safety Report 6750489-8 (Version None)
Quarter: 2010Q2

REPORT INFORMATION
  Report Type: 
  Country: None (occurrence: None)
  Receive Date: 20100601
  Receipt Date: 20100527
  Transmission Date: 20101027
  Serious: Yes (Other)
  Sender: FDA-Public Use
  Company Number: US-MERCK-0901USA03025

PATIENT
  Age: 58 Year
  Sex: Female

DRUGS (1)
  1. FOSAMAX [Suspect]
     Indication: OSTEOPOROSIS
     Route: 048
     Dates: start: 19970801, end: 20060401

REACTIONS (8)
  - BLOOD CHOLESTEROL INCREASED [None]
  - BONE DENSITY DECREASED [None]
  - GINGIVAL SWELLING [None]
  - HYPERTENSION [None]
  - MOUTH ULCERATION [None]
  - OSTEONECROSIS OF JAW [None]
  - STOMATITIS [None]
  - TOOTH FRACTURE [None]
